FAERS Safety Report 4811809-4 (Version None)
Quarter: 2005Q4

REPORT INFORMATION
  Report Type: 
  Country: None (occurrence: None)
  Receive Date: 20051028
  Receipt Date: 20051021
  Transmission Date: 20060501
  Serious: Yes (Other)
  Sender: FDA-Public Use
  Company Number: ES-AVENTIS-200519311GDDC

PATIENT
  Age: 34 Year
  Sex: Female

DRUGS (1)
  1. METRONIDAZOLE [Suspect]
     Indication: VULVOVAGINITIS TRICHOMONAL
     Route: 048

REACTIONS (3)
  - BLISTER [None]
  - DRUG ERUPTION [None]
  - RASH PRURITIC [None]
